FAERS Safety Report 22149728 (Version 1)
Quarter: 2023Q1

REPORT INFORMATION
  Report Type: Spontaneous
  Country: DE (occurrence: DE)
  Receive Date: 20230329
  Receipt Date: 20230329
  Transmission Date: 20230418
  Serious: Yes (Congenital Anomaly, Other)
  Sender: FDA-Public Use
  Company Number: DE-EMBRYOTOX-202207508

PATIENT
  Age: 1 Day
  Sex: Female
  Weight: 3.34 kg

DRUGS (2)
  1. VENLAFAXINE [Suspect]
     Active Substance: VENLAFAXINE HYDROCHLORIDE
     Indication: Depression
     Dosage: 112.5 MILLIGRAM, ONCE A DAY (MG/D)
     Route: 064
     Dates: start: 20220309
  2. CARIPRAZINE [Suspect]
     Active Substance: CARIPRAZINE
     Indication: Schizophrenia
     Dosage: 4.5 MILLIGRAM, ONCE A DAY (REDUCED TO 3MG DAILY)
     Route: 064
     Dates: start: 20220309

REACTIONS (1)
  - Talipes [Unknown]

NARRATIVE: CASE EVENT DATE: 20221201
